FAERS Safety Report 23713183 (Version 1)
Quarter: 2024Q2

REPORT INFORMATION
  Report Type: Spontaneous
  Country: US (occurrence: None)
  Receive Date: 20240404
  Receipt Date: 20240404
  Transmission Date: 20240716
  Serious: Yes (unspecified)
  Sender: FDA-Public Use
  Company Number: None

PATIENT
  Age: 100 Year

DRUGS (3)
  1. DEVICE [Suspect]
     Active Substance: DEVICE
  2. METHOCARBAMOL [Suspect]
     Active Substance: METHOCARBAMOL
  3. KEPPRA [Suspect]
     Active Substance: LEVETIRACETAM

REACTIONS (1)
  - Wrong drug [None]

NARRATIVE: CASE EVENT DATE: 20240205
